FAERS Safety Report 8822842 (Version 2)
Quarter: 2015Q1

REPORT INFORMATION
  Report Type: Report from Study
  Country: US (occurrence: US)
  Receive Date: 20121003
  Receipt Date: 20150119
  Transmission Date: 20150721
  Serious: Yes (Death, Other)
  Sender: FDA-Public Use
  Company Number: US-ROCHE-1130229

PATIENT
  Age: 73 Year
  Sex: Male

DRUGS (4)
  1. RITUXAN [Suspect]
     Active Substance: RITUXIMAB
     Indication: CHRONIC LYMPHOCYTIC LEUKAEMIA
     Route: 042
     Dates: start: 19991108
  2. OXYCODONE [Concomitant]
     Active Substance: OXYCODONE
  3. TYLENOL [Concomitant]
     Active Substance: ACETAMINOPHEN
  4. AMITRIPTYLINE [Concomitant]
     Active Substance: AMITRIPTYLINE

REACTIONS (9)
  - Hypercalcaemia [Unknown]
  - Asthenia [Unknown]
  - Death [Fatal]
  - Constipation [Unknown]
  - Sepsis [Unknown]
  - Back pain [Unknown]
  - Anaemia [Unknown]
  - Disease progression [Unknown]
  - Fatigue [Unknown]

NARRATIVE: CASE EVENT DATE: 19991204
